FAERS Safety Report 14617644 (Version 16)
Quarter: 2019Q4

REPORT INFORMATION
  Report Type: Report from Study
  Country: CA (occurrence: CA)
  Receive Date: 20180309
  Receipt Date: 20191126
  Transmission Date: 20200122
  Serious: Yes (Other)
  Sender: FDA-Public Use
  Company Number: CA-ROCHE-2086120

PATIENT
  Age: 44 Year
  Sex: Female

DRUGS (10)
  1. WELLBUTRIN [Concomitant]
     Active Substance: BUPROPION HYDROCHLORIDE
     Route: 065
     Dates: start: 201909
  2. OCREVUS [Suspect]
     Active Substance: OCRELIZUMAB
     Indication: RELAPSING-REMITTING MULTIPLE SCLEROSIS
     Dosage: 2 INFUSIONS( 300 MG IV) COMPLETED.
     Route: 042
     Dates: start: 20171215, end: 20190718
  3. OCREVUS [Suspect]
     Active Substance: OCRELIZUMAB
     Route: 042
  4. CELEXA [Concomitant]
     Active Substance: CITALOPRAM HYDROBROMIDE
     Indication: ANXIETY DISORDER
  5. CLONAZEPAM. [Concomitant]
     Active Substance: CLONAZEPAM
     Route: 065
  6. DEXEDRINE [Concomitant]
     Active Substance: DEXTROAMPHETAMINE SULFATE
     Route: 065
     Dates: start: 201909
  7. PREDNISONE. [Suspect]
     Active Substance: PREDNISONE
     Indication: PRODUCT USED FOR UNKNOWN INDICATION
     Route: 065
  8. EFFEXOR [Concomitant]
     Active Substance: VENLAFAXINE HYDROCHLORIDE
     Dosage: 125 MG IN THE MORNING AND 75 MG AT NIG
     Route: 065
  9. OCREVUS [Suspect]
     Active Substance: OCRELIZUMAB
     Route: 042
  10. CELEXA [Concomitant]
     Active Substance: CITALOPRAM HYDROBROMIDE
     Indication: DEPRESSION
     Route: 048
     Dates: start: 2012

REACTIONS (35)
  - Increased bronchial secretion [Recovered/Resolved]
  - Asthenia [Not Recovered/Not Resolved]
  - Pain [Unknown]
  - Pyrexia [Not Recovered/Not Resolved]
  - Viral infection [Not Recovered/Not Resolved]
  - Gait disturbance [Not Recovered/Not Resolved]
  - Pneumonia [Recovered/Resolved]
  - Decreased appetite [Not Recovered/Not Resolved]
  - Ear pain [Unknown]
  - Pharyngitis [Recovered/Resolved]
  - Peripheral coldness [Unknown]
  - Pulmonary pain [Recovered/Resolved]
  - Asthenia [Not Recovered/Not Resolved]
  - Fatigue [Not Recovered/Not Resolved]
  - Rhinorrhoea [Not Recovered/Not Resolved]
  - Anxiety [Not Recovered/Not Resolved]
  - Insomnia [Recovered/Resolved]
  - Ear infection [Recovered/Resolved]
  - Cough [Recovered/Resolved]
  - Rash [Not Recovered/Not Resolved]
  - Balance disorder [Not Recovered/Not Resolved]
  - Asthenia [Not Recovered/Not Resolved]
  - Muscular weakness [Not Recovered/Not Resolved]
  - Bronchitis [Recovered/Resolved]
  - Sinus headache [Not Recovered/Not Resolved]
  - Sinusitis [Recovered/Resolved]
  - Condition aggravated [Not Recovered/Not Resolved]
  - Abdominal discomfort [Not Recovered/Not Resolved]
  - Sinusitis [Recovering/Resolving]
  - Therapeutic response decreased [Unknown]
  - Lower respiratory tract infection [Recovered/Resolved]
  - Headache [Not Recovered/Not Resolved]
  - Headache [Unknown]
  - Musculoskeletal stiffness [Unknown]
  - Gait disturbance [Unknown]

NARRATIVE: CASE EVENT DATE: 20171215
